FAERS Safety Report 6813603-1 (Version None)
Quarter: 2010Q3

REPORT INFORMATION
  Report Type: 
  Country: None (occurrence: None)
  Receive Date: 20100701
  Receipt Date: 20100629
  Transmission Date: 20110219
  Serious: Yes (Death)
  Sender: FDA-Public Use
  Company Number: US-CELGENEUS-163-21880-10063116

PATIENT

DRUGS (2)
  1. REVLIMID [Suspect]
     Route: 048
  2. ALLOPURINOL [Concomitant]
     Route: 065

REACTIONS (1)
  - PNEUMOCOCCAL SEPSIS [None]
